FAERS Safety Report 26090628 (Version 1)
Quarter: 2025Q4

REPORT INFORMATION
  Report Type: Spontaneous
  Country: EU (occurrence: EU)
  Receive Date: 20251126
  Receipt Date: 20251126
  Transmission Date: 20260118
  Serious: Yes (Other)
  Sender: ROCHE
  Company Number: None

PATIENT
  Age: 41 Year
  Sex: Female
  Weight: 80 kg

DRUGS (26)
  1. CLONAZEPAM [Suspect]
     Active Substance: CLONAZEPAM
     Indication: Product used for unknown indication
     Route: 048
     Dates: end: 20250928
  2. RITUXIMAB [Suspect]
     Active Substance: RITUXIMAB
     Indication: Follicular lymphoma
     Dosage: R-MTX-CYTARABINE (2 CYCLES)
     Route: 065
     Dates: start: 2025, end: 2025
  3. RITUXIMAB [Suspect]
     Active Substance: RITUXIMAB
     Dosage: R-CHOP-MTX (3 CYCLES)
     Route: 065
     Dates: start: 20250822
  4. PREDNISONE [Suspect]
     Active Substance: PREDNISONE
     Indication: Follicular lymphoma
     Dosage: COP DEBULKING CHEMOTHERAPY
     Route: 065
     Dates: start: 2025, end: 2025
  5. PREDNISONE [Suspect]
     Active Substance: PREDNISONE
     Dosage: R-CHOP-MTX (3 CYCLES)
     Route: 065
     Dates: start: 20250822
  6. DOXORUBICIN [Suspect]
     Active Substance: DOXORUBICIN
     Indication: Follicular lymphoma
     Dosage: R-CHOP-MTX (3 CYCLES)
     Route: 065
     Dates: end: 2025
  7. METHOTREXATE [Suspect]
     Active Substance: METHOTREXATE
     Indication: Follicular lymphoma
     Dosage: R-MTX-CYTARABINE (2 CYCLES)
     Route: 065
     Dates: start: 2025, end: 2025
  8. METHOTREXATE [Suspect]
     Active Substance: METHOTREXATE
     Dosage: R-CHOP-MTX (3 CYCLES)
     Route: 065
     Dates: start: 20250822
  9. CYTARABINE [Suspect]
     Active Substance: CYTARABINE
     Indication: Follicular lymphoma
     Dosage: R-MTX-CYTARABINE (2 CYCLES)
     Route: 065
     Dates: start: 2025, end: 2025
  10. THIOTEPA [Suspect]
     Active Substance: THIOTEPA
     Indication: Product used for unknown indication
     Route: 065
     Dates: end: 20250925
  11. BUSULFAN [Suspect]
     Active Substance: BUSULFAN
     Indication: Bone marrow conditioning regimen
     Route: 042
     Dates: end: 20250928
  12. HEPARIN SODIUM [Suspect]
     Active Substance: HEPARIN SODIUM
     Indication: Thrombosis prophylaxis
     Dosage: INTRAVENOUS DRIP
     Route: 042
     Dates: end: 20251003
  13. RENVELA [Suspect]
     Active Substance: SEVELAMER CARBONATE
     Indication: Product used for unknown indication
     Route: 048
     Dates: start: 20250925, end: 20251002
  14. RENVELA [Suspect]
     Active Substance: SEVELAMER CARBONATE
     Route: 065
     Dates: end: 20250925
  15. VINCRISTINE SULFATE [Suspect]
     Active Substance: VINCRISTINE SULFATE
     Indication: Follicular lymphoma
     Dosage: COP DEBULKING CHEMOTHERAPY
     Route: 065
     Dates: start: 2025, end: 2025
  16. VINCRISTINE SULFATE [Suspect]
     Active Substance: VINCRISTINE SULFATE
     Dosage: R-CHOP-MTX (3 CYCLES)
     Route: 065
     Dates: start: 20250822
  17. CYCLOPHOSPHAMIDE [Suspect]
     Active Substance: CYCLOPHOSPHAMIDE
     Indication: Follicular lymphoma
     Dosage: COP DEBULKING CHEMOTHERAPY
     Route: 065
     Dates: start: 2025, end: 2025
  18. CYCLOPHOSPHAMIDE [Suspect]
     Active Substance: CYCLOPHOSPHAMIDE
     Dosage: R-CHOP-MTX (3 CYCLES)
     Route: 065
     Dates: start: 20250822
  19. PANTOPRAZOLE [Concomitant]
     Active Substance: PANTOPRAZOLE
     Route: 065
  20. CALCIUM CARBONATE\CHOLECALCIFEROL [Concomitant]
     Active Substance: CALCIUM CARBONATE\CHOLECALCIFEROL
     Route: 065
  21. POTASSIUM CHLORIDE [Concomitant]
     Active Substance: POTASSIUM CHLORIDE
     Route: 065
  22. ERYTHROPOIETIN [Concomitant]
     Active Substance: ERYTHROPOIETIN
     Route: 065
  23. BACTRIM [Concomitant]
     Active Substance: SULFAMETHOXAZOLE\TRIMETHOPRIM
     Route: 065
  24. FOLIC ACID [Concomitant]
     Active Substance: FOLIC ACID
     Route: 065
  25. VALACYCLOVIR HYDROCHLORIDE [Concomitant]
     Active Substance: VALACYCLOVIR HYDROCHLORIDE
     Route: 065
  26. FILGRASTIM [Concomitant]
     Active Substance: FILGRASTIM
     Route: 065

REACTIONS (3)
  - Congenital aplasia [Recovered/Resolved]
  - Rash erythematous [Recovered/Resolved]
  - Off label use [Unknown]

NARRATIVE: CASE EVENT DATE: 20250101
